FAERS Safety Report 19342034 (Version 3)
Quarter: 2021Q3

REPORT INFORMATION
  Report Type: Spontaneous
  Country: US (occurrence: US)
  Receive Date: 20210530
  Receipt Date: 20210721
  Transmission Date: 20211014
  Serious: No
  Sender: FDA-Public Use
  Company Number: US-SA-2021SA177462

PATIENT
  Age: 11 Year
  Sex: Female

DRUGS (1)
  1. DUPIXENT [Suspect]
     Active Substance: DUPILUMAB
     Indication: DERMATITIS ATOPIC
     Dosage: 200 MG, QOW
     Route: 058
     Dates: start: 20210524

REACTIONS (5)
  - Pruritus [Not Recovered/Not Resolved]
  - Product use issue [Unknown]
  - Emotional disorder [Unknown]
  - Mood altered [Unknown]
  - Depression [Unknown]

NARRATIVE: CASE EVENT DATE: 2021
